FAERS Safety Report 4350199-0 (Version None)
Quarter: 2004Q2

REPORT INFORMATION
  Report Type: 
  Country: None (occurrence: None)
  Receive Date: 20040428
  Receipt Date: 20040405
  Transmission Date: 20050107
  Serious: Yes (Hospitalization)
  Sender: FDA-Public Use
  Company Number: 6008289

PATIENT
  Age: 70 Year
  Sex: Female

DRUGS (2)
  1. LODOZ (TABLETS) (HYDROCHLOROTHIAZIDE, BISOPROLOL FUMARATE) [Suspect]
     Indication: ESSENTIAL HYPERTENSION
     Dosage: 1 DOSAGE FORM
     Route: 048
  2. PAROXETINE HCL [Concomitant]

REACTIONS (4)
  - CAPILLARY DISORDER [None]
  - CYANOSIS [None]
  - NECROSIS [None]
  - PERIPHERAL COLDNESS [None]
